FAERS Safety Report 4353018-1 (Version None)
Quarter: 2004Q2

REPORT INFORMATION
  Report Type: 
  Country: None (occurrence: None)
  Receive Date: 20040430
  Receipt Date: 20040318
  Transmission Date: 20050107
  Serious: No
  Sender: FDA-Public Use
  Company Number: 205358

PATIENT
  Age: 57 Year
  Sex: Female
  Weight: 89 kg

DRUGS (9)
  1. XOLAIR [Suspect]
     Indication: ASTHMA
     Dosage: 300 MG, 1/MONTH, SUBCUTANEOUS
     Route: 058
     Dates: start: 20040116
  2. QVAR (BECLOMETHASONE DIPROPIONATE) [Concomitant]
  3. THEO-24 (THEOPHYLLINE) [Concomitant]
  4. SINGULAIR [Concomitant]
  5. PREDNISONE [Concomitant]
  6. ZYFLO (ZILDEUTON) [Concomitant]
  7. ADVAIR DISKUS [Concomitant]
  8. CLARITIN [Concomitant]
  9. NASAREL (FLUNISOLIDE) [Concomitant]

REACTIONS (1)
  - PULMONARY FUNCTION TEST DECREASED [None]
